FAERS Safety Report 18433146 (Version 1)
Quarter: 2020Q4

REPORT INFORMATION
  Report Type: Spontaneous
  Country: US (occurrence: US)
  Receive Date: 20201028
  Receipt Date: 20201028
  Transmission Date: 20210114
  Serious: No
  Sender: FDA-Public Use
  Company Number: US-ACCORD-156082

PATIENT
  Sex: Female

DRUGS (3)
  1. SPIRONOLACTONE ACCORD [Suspect]
     Active Substance: SPIRONOLACTONE
     Indication: PORTAL HYPERTENSION
  2. FUROSEMIDE ACCORD [Concomitant]
     Active Substance: FUROSEMIDE
  3. LISINOPRIL ACCORD [Concomitant]
     Active Substance: LISINOPRIL

REACTIONS (1)
  - Product odour abnormal [Unknown]
